FAERS Safety Report 7791990-8 (Version None)
Quarter: 2011Q4

REPORT INFORMATION
  Report Type: 
  Country: None (occurrence: None)
  Receive Date: 20111003
  Receipt Date: 20110928
  Transmission Date: 20120403
  Serious: Yes (Death)
  Sender: FDA-Public Use
  Company Number: CO-ELI_LILLY_AND_COMPANY-CO201108004500

PATIENT
  Age: 72 Year
  Sex: Female

DRUGS (2)
  1. CISPLATIN [Concomitant]
     Dosage: 60 MG, UNKNOWN
  2. GEMZAR [Suspect]
     Indication: OVARIAN CANCER METASTATIC
     Dosage: 1500 MG, 1 WEEK CYCLES
     Dates: start: 20110721

REACTIONS (1)
  - NEOPLASM PROGRESSION [None]
